FAERS Safety Report 4841152-9 (Version None)
Quarter: 2005Q4

REPORT INFORMATION
  Report Type: 
  Country: None (occurrence: None)
  Receive Date: 20051130
  Receipt Date: 20051013
  Transmission Date: 20060501
  Serious: No
  Sender: FDA-Public Use
  Company Number: US-BRISTOL-MYERS SQUIBB COMPANY-13143813

PATIENT
  Age: 23 Year
  Sex: Male

DRUGS (3)
  1. ABILIFY [Suspect]
     Indication: SCHIZOAFFECTIVE DISORDER
     Route: 048
  2. TRILEPTAL [Concomitant]
  3. SEROQUEL [Concomitant]

REACTIONS (1)
  - HYPOAESTHESIA ORAL [None]
